FAERS Safety Report 21482936 (Version 1)
Quarter: 2022Q4

REPORT INFORMATION
  Report Type: Spontaneous
  Country: US (occurrence: US)
  Receive Date: 20221020
  Receipt Date: 20221020
  Transmission Date: 20230112
  Serious: No
  Sender: FDA-Public Use
  Company Number: US-ALLERGAN-2135252US

PATIENT
  Age: 89 Year
  Sex: Male
  Weight: 65.76 kg

DRUGS (5)
  1. LINZESS [Suspect]
     Active Substance: LINACLOTIDE
     Indication: Constipation
     Dosage: 72 ?G 30 MIN BEFORE BREAKFAST
  2. LINZESS [Suspect]
     Active Substance: LINACLOTIDE
     Indication: Gastrointestinal motility disorder
  3. REXULTI [Concomitant]
     Active Substance: BREXPIPRAZOLE
     Indication: Affective disorder
     Dosage: 1 MG
     Dates: start: 202110
  4. UNSPECIFIED INGREDIENT [Concomitant]
     Active Substance: UNSPECIFIED INGREDIENT
     Indication: Blood pressure measurement
     Dosage: UNK
  5. UNSPECIFIED INGREDIENT [Concomitant]
     Active Substance: UNSPECIFIED INGREDIENT
     Indication: Blood cholesterol
     Dosage: UNK

REACTIONS (1)
  - Gastrointestinal motility disorder [Not Recovered/Not Resolved]
